FAERS Safety Report 6172113-8 (Version None)
Quarter: 2009Q2

REPORT INFORMATION
  Report Type: 
  Country: None (occurrence: None)
  Receive Date: 20090428
  Receipt Date: 20090428
  Transmission Date: 20091009
  Serious: Yes (Other)
  Sender: FDA-Public Use
  Company Number: None

PATIENT
  Age: 75 Year
  Sex: Female
  Weight: 58 kg

DRUGS (9)
  1. LEVOFLOXACIN [Suspect]
     Indication: URINARY TRACT INFECTION
     Dosage: LEVOFLOXACIN 500 MG DAILY IV BOLUS
     Route: 040
     Dates: start: 20090401, end: 20090401
  2. METOPROLOL TARTRATE [Concomitant]
  3. ATORVASTATIN [Concomitant]
  4. HEPARIN [Concomitant]
  5. WARFARIN [Concomitant]
  6. POTASSIUM CHLORIDE [Concomitant]
  7. ASPIRIN [Concomitant]
  8. ESOMEPRAZOLE MAGNESIUM [Concomitant]
  9. METHIMAZOLE [Concomitant]

REACTIONS (2)
  - CEREBROVASCULAR ACCIDENT [None]
  - ELECTROCARDIOGRAM QT PROLONGED [None]
